FAERS Safety Report 7331500-2 (Version None)
Quarter: 2011Q1

REPORT INFORMATION
  Report Type: 
  Country: None (occurrence: None)
  Receive Date: 20110228
  Receipt Date: 20110228
  Transmission Date: 20110831
  Serious: Yes (Other)
  Sender: FDA-Public Use
  Company Number: None

PATIENT
  Sex: Male
  Weight: 63.5036 kg

DRUGS (1)
  1. CLOTRIMAZOLE AND BETAMETHASONE DIPROPIONATE [Suspect]
     Indication: FUNGAL SKIN INFECTION
     Dosage: APPLY CREAM 2 X /DAY
     Route: 061
     Dates: start: 20110201, end: 20110205

REACTIONS (2)
  - PRURITUS [None]
  - FURUNCLE [None]
